FAERS Safety Report 20115925 (Version 2)
Quarter: 2024Q2

REPORT INFORMATION
  Report Type: Spontaneous
  Country: US (occurrence: US)
  Receive Date: 20211126
  Receipt Date: 20240424
  Transmission Date: 20240716
  Serious: Yes (Death, Life-Threatening, Hospitalization, Other)
  Sender: FDA-Public Use
  Company Number: None

PATIENT
  Age: 42 Year
  Sex: Female

DRUGS (5)
  1. MYCOPHENOLATE MOFETIL [Suspect]
     Active Substance: MYCOPHENOLATE MOFETIL
     Indication: Immunosuppression
     Dosage: UNK
     Route: 065
  2. TACROLIMUS [Suspect]
     Active Substance: TACROLIMUS
     Indication: Immunosuppression
     Dosage: UNK
     Route: 065
  3. PREDNISONE [Suspect]
     Active Substance: PREDNISONE
     Indication: Immunosuppression
     Dosage: UNK
     Route: 065
  4. THIAMINE [Concomitant]
     Active Substance: THIAMINE
     Indication: Vitamin B complex deficiency
     Dosage: UNK
     Route: 065
  5. CYPROHEPTADINE [Concomitant]
     Active Substance: CYPROHEPTADINE
     Indication: Serotonin syndrome
     Dosage: UNK
     Route: 065

REACTIONS (9)
  - Brain death [Fatal]
  - Brain herniation [Fatal]
  - Brain oedema [Fatal]
  - Haemodynamic instability [Unknown]
  - Status epilepticus [Unknown]
  - Cardiac arrest [Recovered/Resolved]
  - JC virus infection [Fatal]
  - Progressive multifocal leukoencephalopathy [Fatal]
  - Neurotoxicity [Unknown]
